FAERS Safety Report 14702734 (Version 1)
Quarter: 2018Q2

REPORT INFORMATION
  Report Type: Spontaneous
  Country: US (occurrence: US)
  Receive Date: 20180402
  Receipt Date: 20180402
  Transmission Date: 20180711
  Serious: Yes (Other)
  Sender: FDA-Public Use
  Company Number: US-COLGATE PALMOLIVE COMPANY-20180300732

PATIENT

DRUGS (2)
  1. TOMS NATURALLY DRY ANTIPERSPIRANT DEODORANT - FRESH MEADOW WETNESS PROTECTION [Suspect]
     Active Substance: ALUMINUM CHLOROHYDRATE
  2. TOM^S OF MAINE DEODORANT STICK NATURAL UNSPECIFIE D [Suspect]
     Active Substance: COSMETICS

REACTIONS (2)
  - Product formulation issue [None]
  - Prostate cancer [Unknown]
